FAERS Safety Report 14979350 (Version 1)
Quarter: 2018Q2

REPORT INFORMATION
  Report Type: Spontaneous
  Country: US (occurrence: US)
  Receive Date: 20180606
  Receipt Date: 20180606
  Transmission Date: 20180711
  Serious: Yes (Other)
  Sender: FDA-Public Use
  Company Number: US-NOVOPROD-603389

PATIENT
  Age: 48 Year
  Sex: Male

DRUGS (4)
  1. SAXENDA [Suspect]
     Active Substance: LIRAGLUTIDE
     Dosage: 3 MG, QD
     Route: 058
     Dates: start: 20180515, end: 201805
  2. SAXENDA [Suspect]
     Active Substance: LIRAGLUTIDE
     Dosage: 0.6 MG, QD
     Route: 058
     Dates: start: 201805
  3. SAXENDA [Suspect]
     Active Substance: LIRAGLUTIDE
     Indication: OBESITY
     Dosage: 0.6 MG, QD
     Route: 058
     Dates: start: 201803, end: 2018
  4. SAXENDA [Suspect]
     Active Substance: LIRAGLUTIDE
     Dosage: 3 MG, QD
     Route: 058
     Dates: start: 2018, end: 20180503

REACTIONS (4)
  - Vomiting [Recovered/Resolved]
  - Nausea [Unknown]
  - Diverticulitis [Recovering/Resolving]
  - Drug dose titration not performed [Recovered/Resolved]

NARRATIVE: CASE EVENT DATE: 20180503
